FAERS Safety Report 10768666 (Version 1)
Quarter: 2015Q1

REPORT INFORMATION
  Report Type: Spontaneous
  Country: US (occurrence: None)
  Receive Date: 20150205
  Receipt Date: 20150205
  Transmission Date: 20150721
  Serious: Yes (Hospitalization)
  Sender: FDA-Public Use
  Company Number: None

PATIENT
  Age: 60 Year
  Sex: Male
  Weight: 68 kg

DRUGS (5)
  1. IBUPROFEN. [Suspect]
     Active Substance: IBUPROFEN
     Indication: PAIN
     Route: 048
  2. AMARYL [Concomitant]
     Active Substance: GLIMEPIRIDE
  3. LEXAPRO [Concomitant]
     Active Substance: ESCITALOPRAM OXALATE
  4. METFORMIN [Concomitant]
     Active Substance: METFORMIN HYDROCHLORIDE
  5. CORGARD [Concomitant]
     Active Substance: NADOLOL

REACTIONS (4)
  - Varices oesophageal [None]
  - Upper gastrointestinal haemorrhage [None]
  - Gastric ulcer [None]
  - Haemorrhagic anaemia [None]

NARRATIVE: CASE EVENT DATE: 20141205
